FAERS Safety Report 10643158 (Version 1)
Quarter: 2014Q4

REPORT INFORMATION
  Report Type: Spontaneous
  Country: US (occurrence: None)
  Receive Date: 20141209
  Receipt Date: 20141209
  Transmission Date: 20150529
  Serious: Yes (Disabling)
  Sender: FDA-Public Use
  Company Number: None

PATIENT
  Age: 80 Year
  Sex: Male
  Weight: 99.79 kg

DRUGS (19)
  1. IBUPROFEN (TAB) IBUPROFEN [Concomitant]
  2. NITROGLYCERIN (SL TAB) NITROGLYCERIN [Concomitant]
  3. OMEGA-3 FATTY ACIDS(CAP) OMEGA-3 FISH OIL [Concomitant]
  4. TRIAMCINOLONE ACETONIDE (CREAM) TRIAMCINOLONE 0.1% CREAM [Concomitant]
  5. ASPIRIN (TAB) ASPIRIN [Concomitant]
  6. CHOLECALCIFEROL VITAMIN D-3 [Concomitant]
  7. CARBIDOPA-LEVODOPA (TAB) CARBIDOPA-LEVODOPA [Concomitant]
  8. FUROSEMIDE (TAB) FUROSEMIDE [Concomitant]
  9. POTASSIUM CHLORIDE (TAB CR) POTASSIUM CHLORIDE SA [Concomitant]
  10. UNCLASSIFIED UNKNOWN MEDICATION [Concomitant]
  11. VALSARTAN (TAB) VALSARTAN [Concomitant]
  12. CIALIS [Suspect]
     Active Substance: TADALAFIL
     Indication: ERECTILE DYSFUNCTION
     Route: 048
     Dates: start: 20141124, end: 20141207
  13. ALLOPURINOL (TAB) ALLOPURINOL [Concomitant]
  14. COENZYME Q10 (CAP) CO Q 10 [Concomitant]
  15. CYANOCOBALAMIN (TAB) CYANOCOBALAMIN 1000 [Concomitant]
  16. DOXAZOSIN MESYLATE (TAB) DOXAZOSIN [Concomitant]
  17. LINAGLIPTIN (TAB) LINAGLIPTIN [Concomitant]
  18. POLYETHYLENE GLYCOL 3350 (POWDER) POLYETHYLENE GLYCOL? [Concomitant]
  19. RIVASTIGMINE TARTRATE (CAP) RIVASTIGMINE [Concomitant]

REACTIONS (1)
  - Deafness unilateral [None]

NARRATIVE: CASE EVENT DATE: 20141207
